FAERS Safety Report 12683058 (Version 1)
Quarter: 2016Q3

REPORT INFORMATION
  Report Type: Spontaneous
  Country: US (occurrence: US)
  Receive Date: 20160825
  Receipt Date: 20160825
  Transmission Date: 20161109
  Serious: No
  Sender: FDA-Public Use
  Company Number: US-BAYER-2016-165463

PATIENT
  Age: 3 Year
  Sex: Female

DRUGS (1)
  1. MIRALAX [Suspect]
     Active Substance: POLYETHYLENE GLYCOL 3350
     Indication: CONSTIPATION
     Dosage: 1/2 DF, QD
     Route: 048

REACTIONS (4)
  - Drug administered to patient of inappropriate age [None]
  - Rash [Not Recovered/Not Resolved]
  - Product use issue [None]
  - Urticaria [Not Recovered/Not Resolved]
